FAERS Safety Report 8092683-2 (Version None)
Quarter: 2012Q1

REPORT INFORMATION
  Report Type: 
  Country: None (occurrence: None)
  Receive Date: 20120128
  Receipt Date: 20110725
  Transmission Date: 20120608
  Serious: No
  Sender: FDA-Public Use
  Company Number: US-ABBOTT-11P-163-0841654-00

PATIENT
  Sex: Female
  Weight: 48.124 kg

DRUGS (3)
  1. MULTIPLE UNLISTED CONCOMITANT MEDICATIONS [Concomitant]
     Indication: PRODUCT USED FOR UNKNOWN INDICATION
  2. HUMIRA [Suspect]
     Indication: CROHN'S DISEASE
  3. HUMIRA [Suspect]
     Indication: ANKYLOSING SPONDYLITIS
     Route: 058
     Dates: start: 20070801

REACTIONS (3)
  - CROHN'S DISEASE [None]
  - ANKYLOSING SPONDYLITIS [None]
  - DRUG INEFFECTIVE [None]
